FAERS Safety Report 6768707-9 (Version None)
Quarter: 2010Q2

REPORT INFORMATION
  Report Type: 
  Country: None (occurrence: None)
  Receive Date: 20100614
  Receipt Date: 20100604
  Transmission Date: 20101027
  Serious: Yes (Other)
  Sender: FDA-Public Use
  Company Number: US-AMGEN-QUU393510

PATIENT
  Sex: Female
  Weight: 130 kg

DRUGS (16)
  1. NPLATE [Suspect]
     Indication: IDIOPATHIC THROMBOCYTOPENIC PURPURA
     Route: 058
     Dates: start: 20090908, end: 20091015
  2. CORTICOSTEROIDS [Concomitant]
     Dates: start: 20060101
  3. IMMU-G [Concomitant]
     Route: 042
     Dates: start: 20090902
  4. METFORMIN HCL [Concomitant]
  5. EFFEXOR [Concomitant]
  6. LAMICTAL [Concomitant]
  7. LISINOPRIL [Concomitant]
  8. LEVOTHYROXINE SODIUM [Concomitant]
  9. XANAX [Concomitant]
  10. SEROQUEL [Concomitant]
  11. INSULIN [Concomitant]
  12. LANTUS [Concomitant]
  13. COMBIVENT [Concomitant]
     Route: 055
  14. ADVAIR DISKUS 100/50 [Concomitant]
     Route: 055
  15. LORTAB [Concomitant]
  16. VICODIN [Concomitant]

REACTIONS (6)
  - BACK PAIN [None]
  - DEPRESSION [None]
  - DIZZINESS [None]
  - DRUG INEFFECTIVE [None]
  - FATIGUE [None]
  - URINARY TRACT INFECTION [None]
